FAERS Safety Report 24710627 (Version 2)
Quarter: 2025Q1

REPORT INFORMATION
  Report Type: Spontaneous
  Country: JP (occurrence: JP)
  Receive Date: 20241209
  Receipt Date: 20250108
  Transmission Date: 20250409
  Serious: Yes (Other)
  Sender: TAKEDA
  Company Number: JP-TAKEDA-2024TJP016026

PATIENT
  Age: 55 Year
  Sex: Female
  Weight: 54.6 kg

DRUGS (4)
  1. ALUNBRIG [Suspect]
     Active Substance: BRIGATINIB
     Indication: Non-small cell lung cancer
     Dates: start: 20241009, end: 20241015
  2. ALUNBRIG [Suspect]
     Active Substance: BRIGATINIB
     Dates: start: 20241016, end: 20241030
  3. ALUNBRIG [Suspect]
     Active Substance: BRIGATINIB
  4. PREDONINE [Concomitant]
     Active Substance: PREDNISOLONE
     Indication: Non-small cell lung cancer

REACTIONS (2)
  - Erythema nodosum [Recovered/Resolved]
  - Pyrexia [Recovered/Resolved]

NARRATIVE: CASE EVENT DATE: 20241106
